FAERS Safety Report 7971754-2 (Version None)
Quarter: 2011Q4

REPORT INFORMATION
  Report Type: 
  Country: None (occurrence: None)
  Receive Date: 20111212
  Receipt Date: 20111129
  Transmission Date: 20120403
  Serious: Yes (Other)
  Sender: FDA-Public Use
  Company Number: CHPA2011US017344

PATIENT
  Age: 70 Year
  Sex: Female

DRUGS (5)
  1. TRANSDERM SCOP [Suspect]
     Indication: VERTIGO
     Dosage: 1 DF, QD
     Route: 062
     Dates: start: 20080101
  2. PAROXETINE HCL [Concomitant]
  3. METOCLOPRAMIDE [Concomitant]
  4. NEXIUM [Concomitant]
  5. MECLIZINE [Concomitant]
     Dosage: 25 MG, UNK
     Dates: start: 20111128

REACTIONS (4)
  - DEMENTIA [None]
  - OFF LABEL USE [None]
  - INAPPROPRIATE SCHEDULE OF DRUG ADMINISTRATION [None]
  - THERAPEUTIC RESPONSE DECREASED [None]
